FAERS Safety Report 19207378 (Version 1)
Quarter: 2021Q2

REPORT INFORMATION
  Report Type: Spontaneous
  Country: FR (occurrence: FR)
  Receive Date: 20210503
  Receipt Date: 20210503
  Transmission Date: 20210717
  Serious: Yes (Other)
  Sender: FDA-Public Use
  Company Number: NVSC2021FR094559

PATIENT
  Age: 84 Year
  Sex: Female

DRUGS (2)
  1. DABRAFENIB [Suspect]
     Active Substance: DABRAFENIB
     Indication: MELANOMA RECURRENT
     Dosage: UNK
     Route: 065
     Dates: end: 202009
  2. TRAMETINIB [Suspect]
     Active Substance: TRAMETINIB
     Indication: MELANOMA RECURRENT
     Dosage: UNK
     Route: 065
     Dates: end: 202009

REACTIONS (1)
  - Cardiotoxicity [Unknown]
